FAERS Safety Report 7023327-6 (Version None)
Quarter: 2010Q3

REPORT INFORMATION
  Report Type: 
  Country: None (occurrence: None)
  Receive Date: 20100930
  Receipt Date: 20100920
  Transmission Date: 20110219
  Serious: Yes (Death)
  Sender: FDA-Public Use
  Company Number: AU-PFIZER INC-2010119911

PATIENT
  Age: 52 Year
  Sex: Female

DRUGS (2)
  1. XANAX [Suspect]
     Indication: PAIN
  2. MORPHINE HYDROCHLORIDE [Concomitant]

REACTIONS (2)
  - DEATH [None]
  - OVERDOSE [None]
